FAERS Safety Report 7279795-8 (Version None)
Quarter: 2011Q1

REPORT INFORMATION
  Report Type: 
  Country: None (occurrence: None)
  Receive Date: 20110208
  Receipt Date: 20110203
  Transmission Date: 20110831
  Serious: Yes (Hospitalization, Other)
  Sender: FDA-Public Use
  Company Number: US-PFIZER INC-2010072326

PATIENT
  Sex: Female

DRUGS (3)
  1. CHANTIX [Suspect]
     Indication: SMOKING CESSATION THERAPY
     Dosage: UNK
     Dates: start: 20080101
  2. EFFEXOR [Concomitant]
     Indication: ATTENTION DEFICIT/HYPERACTIVITY DISORDER
     Dosage: UNK
     Dates: start: 20070101
  3. EFFEXOR [Concomitant]
     Indication: BIPOLAR DISORDER

REACTIONS (9)
  - LIGAMENT INJURY [None]
  - DEPRESSION [None]
  - AGITATION [None]
  - CRYING [None]
  - ARTERIAL INJURY [None]
  - INTENTIONAL SELF-INJURY [None]
  - NAUSEA [None]
  - SUICIDE ATTEMPT [None]
  - MEDIAN NERVE INJURY [None]
